FAERS Safety Report 14554180 (Version 1)
Quarter: 2018Q1

REPORT INFORMATION
  Report Type: Spontaneous
  Country: US (occurrence: US)
  Receive Date: 20180220
  Receipt Date: 20180220
  Transmission Date: 20180509
  Serious: Yes (Other)
  Sender: FDA-Public Use
  Company Number: PHHY2018US027965

PATIENT

DRUGS (2)
  1. SANDOSTATIN LAR DEPOT [Suspect]
     Active Substance: OCTREOTIDE ACETATE
     Indication: CONGENITAL CYSTIC KIDNEY DISEASE
  2. SANDOSTATIN LAR DEPOT [Suspect]
     Active Substance: OCTREOTIDE ACETATE
     Indication: POLYCYSTIC LIVER DISEASE
     Dosage: 20 MG, ONE INJECTION EVERY 28 DAYS
     Route: 065

REACTIONS (2)
  - Hepatic atrophy [Unknown]
  - Product use in unapproved indication [Unknown]
